FAERS Safety Report 7004971-9 (Version None)
Quarter: 2010Q3

REPORT INFORMATION
  Report Type: 
  Country: None (occurrence: None)
  Receive Date: 20100921
  Receipt Date: 20100910
  Transmission Date: 20110219
  Serious: Yes (Hospitalization)
  Sender: FDA-Public Use
  Company Number: US-BAXTER-2010BH023447

PATIENT
  Sex: Female

DRUGS (4)
  1. DIANEAL [Suspect]
     Indication: PERITONEAL DIALYSIS
     Route: 033
     Dates: start: 20100907, end: 20100901
  2. DIANEAL [Suspect]
     Route: 033
     Dates: end: 20100501
  3. EXTRANEAL [Suspect]
     Indication: PERITONEAL DIALYSIS
     Route: 033
     Dates: start: 20100907, end: 20100901
  4. EXTRANEAL [Suspect]
     Route: 033
     Dates: end: 20100501

REACTIONS (3)
  - DYSPNOEA [None]
  - INFUSION SITE EXTRAVASATION [None]
  - PNEUMONIA [None]
